FAERS Safety Report 17815725 (Version 1)
Quarter: 2020Q2

REPORT INFORMATION
  Report Type: Spontaneous
  Country: US (occurrence: US)
  Receive Date: 20200522
  Receipt Date: 20200522
  Transmission Date: 20200714
  Serious: Yes (Life-Threatening, Hospitalization, Other)
  Sender: FDA-Public Use
  Company Number: US-JNJFOC-20200521186

PATIENT
  Age: 44 Year
  Sex: Female

DRUGS (1)
  1. PARACETAMOL [Suspect]
     Active Substance: ACETAMINOPHEN
     Indication: PRODUCT USED FOR UNKNOWN INDICATION
     Route: 065

REACTIONS (5)
  - Unresponsive to stimuli [Recovering/Resolving]
  - Liver injury [Unknown]
  - Overdose [Recovering/Resolving]
  - Lactic acidosis [Recovering/Resolving]
  - Pyroglutamic acidosis [Recovering/Resolving]
